FAERS Safety Report 10743186 (Version 1)
Quarter: 2015Q1

REPORT INFORMATION
  Report Type: Spontaneous
  Country: US (occurrence: US)
  Receive Date: 20150127
  Receipt Date: 20150127
  Transmission Date: 20150721
  Serious: Yes (Other)
  Sender: FDA-Public Use
  Company Number: US-GLAXOSMITHKLINE-A1059281A

PATIENT

DRUGS (3)
  1. WELLBUTRIN [Suspect]
     Active Substance: BUPROPION HYDROCHLORIDE
     Indication: EX-TOBACCO USER
     Dosage: UNKNOWN DOSING
     Route: 048
  2. ZITHROMAX [Concomitant]
     Active Substance: AZITHROMYCIN DIHYDRATE
  3. ZITHROMAX [Concomitant]
     Active Substance: AZITHROMYCIN DIHYDRATE

REACTIONS (1)
  - Suicidal ideation [Recovered/Resolved]
